FAERS Safety Report 8033678-4 (Version None)
Quarter: 2012Q1

REPORT INFORMATION
  Report Type: 
  Country: None (occurrence: None)
  Receive Date: 20120110
  Receipt Date: 20120103
  Transmission Date: 20120608
  Serious: Yes (Hospitalization)
  Sender: FDA-Public Use
  Company Number: US-GLAXOSMITHKLINE-A0814940A

PATIENT
  Age: 54 Year
  Sex: Male

DRUGS (5)
  1. ALTACE [Concomitant]
  2. COREG [Concomitant]
  3. LIPITOR [Concomitant]
  4. GLUCOTROL [Concomitant]
  5. AVANDIA [Suspect]
     Indication: DIABETES MELLITUS
     Dosage: 8MG PER DAY
     Route: 048
     Dates: start: 20020905, end: 20061201

REACTIONS (1)
  - ACUTE MYOCARDIAL INFARCTION [None]
